FAERS Safety Report 5363658-9 (Version None)
Quarter: 2007Q2

REPORT INFORMATION
  Report Type: 
  Country: None (occurrence: None)
  Receive Date: 20070618
  Receipt Date: 20070618
  Transmission Date: 20071010
  Serious: Yes (Death)
  Sender: FDA-Public Use
  Company Number: None

PATIENT
  Age: 20 Year
  Sex: Male
  Weight: 70.3075 kg

DRUGS (1)
  1. OXYCONTIN [Suspect]

REACTIONS (1)
  - MULTIPLE DRUG OVERDOSE [None]
